FAERS Safety Report 15751457 (Version 1)
Quarter: 2018Q4

REPORT INFORMATION
  Report Type: Spontaneous
  Country: US (occurrence: US)
  Receive Date: 20181221
  Receipt Date: 20181221
  Transmission Date: 20190205
  Serious: Yes (Hospitalization, Other)
  Sender: FDA-Public Use
  Company Number: US-PFIZER INC-2018526568

PATIENT
  Sex: Female

DRUGS (1)
  1. PROSTIN E2 [Suspect]
     Active Substance: DINOPROSTONE
     Dosage: UNK
     Route: 064

REACTIONS (3)
  - Premature baby [Unknown]
  - Neurodevelopmental disorder [Unknown]
  - Exposure during pregnancy [Unknown]
